FAERS Safety Report 9486058 (Version 2)
Quarter: 2013Q3

REPORT INFORMATION
  Report Type: Spontaneous
  Country: ES (occurrence: ES)
  Receive Date: 20130829
  Receipt Date: 20130916
  Transmission Date: 20140515
  Serious: Yes (Other)
  Sender: FDA-Public Use
  Company Number: ES-JNJFOC-20130815608

PATIENT
  Age: 48 Year
  Sex: Female

DRUGS (1)
  1. PONTALSIC [Suspect]
     Indication: MYALGIA
     Dosage: AS NEEDED
     Route: 048
     Dates: start: 20130720, end: 20130723

REACTIONS (2)
  - Mental disorder [Recovered/Resolved]
  - Nervousness [Recovered/Resolved]
